FAERS Safety Report 5533974-6 (Version None)
Quarter: 2007Q4

REPORT INFORMATION
  Report Type: 
  Country: None (occurrence: None)
  Receive Date: 20071129
  Receipt Date: 20071119
  Transmission Date: 20080405
  Serious: Yes (Hospitalization)
  Sender: FDA-Public Use
  Company Number: GXKR2007GB09980

PATIENT
  Age: 71 Year
  Sex: Male

DRUGS (4)
  1. FUROSEMIDE [Suspect]
     Indication: OEDEMA PERIPHERAL
     Dosage: 40 MG/DAY
  2. DIGOXIN [Suspect]
     Indication: ATRIAL FIBRILLATION
     Dosage: 187.5 UG/DAY
  3. PERINDOPRIL ERBUMINE [Concomitant]
  4. WARFARIN SODIUM [Concomitant]

REACTIONS (4)
  - DRUG INTERACTION [None]
  - HYPOMAGNESAEMIA [None]
  - NAUSEA [None]
  - VOMITING [None]
